FAERS Safety Report 5520718-7 (Version None)
Quarter: 2007Q4

REPORT INFORMATION
  Report Type: 
  Country: None (occurrence: None)
  Receive Date: 20071119
  Receipt Date: 20071105
  Transmission Date: 20080405
  Serious: Yes (Disabling)
  Sender: FDA-Public Use
  Company Number: FR-AVENTIS-200713478FR

PATIENT
  Age: 68 Year
  Sex: Female

DRUGS (2)
  1. BIRODOGYL [Suspect]
     Indication: DENTAL CARE
     Route: 048
     Dates: start: 20070710, end: 20070713
  2. ADVIL LIQUI-GELS [Suspect]
     Route: 048
     Dates: start: 20070710

REACTIONS (2)
  - DEPRESSION [None]
  - FATIGUE [None]
